FAERS Safety Report 4401856-9 (Version None)
Quarter: 2004Q3

REPORT INFORMATION
  Report Type: 
  Country: None (occurrence: None)
  Receive Date: 20040714
  Receipt Date: 20040625
  Transmission Date: 20050211
  Serious: Yes (Hospitalization, Other)
  Sender: FDA-Public Use
  Company Number: USA040670885

PATIENT
  Sex: Female

DRUGS (4)
  1. HUMALOG [Suspect]
     Dates: start: 20000801
  2. HUMULIN N [Suspect]
     Dates: start: 19960101, end: 20000801
  3. ACTOS [Concomitant]
  4. NOVOLIN N [Concomitant]

REACTIONS (8)
  - ACCIDENT [None]
  - BLOOD GLUCOSE INCREASED [None]
  - HYPERTENSION [None]
  - JOINT SWELLING [None]
  - MYOCARDIAL INFARCTION [None]
  - NASOPHARYNGITIS [None]
  - PHARMACEUTICAL PRODUCT COMPLAINT [None]
  - STRESS SYMPTOMS [None]
